FAERS Safety Report 9398117 (Version 2)
Quarter: 2014Q1

REPORT INFORMATION
  Report Type: Spontaneous
  Country: US (occurrence: US)
  Receive Date: 20130712
  Receipt Date: 20140203
  Transmission Date: 20141002
  Serious: Yes (Hospitalization)
  Sender: FDA-Public Use
  Company Number: US-GLAXOSMITHKLINE-A1032349A

PATIENT
  Age: 56 Year
  Sex: Female

DRUGS (1)
  1. AVANDIA [Suspect]
     Indication: DIABETES MELLITUS
     Dosage: 4MG PER DAY
     Route: 048
     Dates: start: 200404, end: 200603

REACTIONS (13)
  - Cardiac failure congestive [Unknown]
  - Myocardial infarction [Unknown]
  - Angina pectoris [Unknown]
  - Cardiogenic shock [Unknown]
  - Respiratory arrest [Unknown]
  - Respiratory failure [Unknown]
  - Pulmonary oedema [Unknown]
  - Coronary artery disease [Unknown]
  - Vocal cord paralysis [Unknown]
  - Chronic obstructive pulmonary disease [Unknown]
  - Electrocardiogram change [Unknown]
  - Depression [Unknown]
  - Insomnia [Unknown]
